FAERS Safety Report 22932150 (Version 3)
Quarter: 2025Q4

REPORT INFORMATION
  Report Type: Report from Study
  Country: US (occurrence: US)
  Receive Date: 20230912
  Receipt Date: 20251119
  Transmission Date: 20260117
  Serious: Yes (Life-Threatening, Hospitalization, Disabling, Other)
  Sender: JOHNSON AND JOHNSON
  Company Number: US-JNJFOC-20230902076

PATIENT
  Age: 70 Year
  Sex: Female
  Weight: 78 kg

DRUGS (3)
  1. DARATUMUMAB [Suspect]
     Active Substance: DARATUMUMAB
     Indication: Plasma cell myeloma
     Dosage: (LAST DOSE OF DARATUMUMAB WAS ADMINISTERED ON C2D1 (25-JUL-2023) AS SCHEDULED WITH NEXT PLANNED DOSE
     Route: 058
     Dates: start: 20230713, end: 20230725
  2. ELRANATAMAB [Suspect]
     Active Substance: ELRANATAMAB
     Indication: Plasma cell myeloma
     Dosage: ( LAST DOSE OF ERANATAMAB WAS ADMINISTERED ON CYCLE 2 DAY 1 (C2D1) (25-JUL-2023) AS SCHEDULED,)
     Route: 065
     Dates: start: 20230707, end: 20230725
  3. DIAZEPAM [Concomitant]
     Active Substance: DIAZEPAM
     Indication: Product used for unknown indication
     Route: 065

REACTIONS (2)
  - Disseminated cytomegaloviral infection [Recovered/Resolved]
  - Immune effector cell-associated neurotoxicity syndrome [Recovered/Resolved with Sequelae]

NARRATIVE: CASE EVENT DATE: 20230725
